FAERS Safety Report 5670302-X (Version None)
Quarter: 2008Q1

REPORT INFORMATION
  Report Type: 
  Country: None (occurrence: None)
  Receive Date: 20080314
  Receipt Date: 20080314
  Transmission Date: 20080703
  Serious: Yes (Life-Threatening)
  Sender: FDA-Public Use
  Company Number: None

PATIENT
  Age: 56 Year
  Sex: Female

DRUGS (2)
  1. DEFINITY [Suspect]
     Indication: ECHOCARDIOGRAM
     Dosage: 0.2ML ONE TIMES IV
     Route: 042
  2. DEFINITY [Suspect]
     Indication: SCAN WITH CONTRAST
     Dosage: 0.2ML ONE TIMES IV
     Route: 042

REACTIONS (4)
  - CONTRAST MEDIA REACTION [None]
  - CONVULSION [None]
  - LOSS OF CONSCIOUSNESS [None]
  - RESPIRATION ABNORMAL [None]
